FAERS Safety Report 23880968 (Version 1)
Quarter: 2024Q2

REPORT INFORMATION
  Report Type: Spontaneous
  Country: MY (occurrence: MY)
  Receive Date: 20240521
  Receipt Date: 20240521
  Transmission Date: 20240717
  Serious: Yes (Other)
  Sender: FDA-Public Use
  Company Number: MY-AMGEN-MYSSP2024098760

PATIENT

DRUGS (1)
  1. BEVACIZUMAB [Suspect]
     Active Substance: BEVACIZUMAB
     Indication: Corneal neovascularisation
     Dosage: UNK, 0.5 % CONCENTRATION, EYE DROP
     Route: 061

REACTIONS (3)
  - Corneal neovascularisation [Unknown]
  - Drug ineffective for unapproved indication [Unknown]
  - Off label use [Unknown]
